FAERS Safety Report 10729425 (Version 2)
Quarter: 2015Q1

REPORT INFORMATION
  Report Type: Report from Study
  Country: UG (occurrence: UG)
  Receive Date: 20150122
  Receipt Date: 20150127
  Transmission Date: 20150721
  Serious: Yes (Hospitalization, Other)
  Sender: FDA-Public Use
  Company Number: UG-BRISTOL-MYERS SQUIBB COMPANY-BMS-2015-001948

PATIENT
  Age: 55 Year
  Sex: Female
  Weight: 55 kg

DRUGS (5)
  1. METFORMIN [Concomitant]
     Active Substance: METFORMIN HYDROCHLORIDE
  2. COTRIMOXAZOLE [Concomitant]
     Active Substance: SULFAMETHOXAZOLE\TRIMETHOPRIM
  3. EFAVIRENZ [Suspect]
     Active Substance: EFAVIRENZ
     Indication: HIV INFECTION
     Dosage: 600 MG, ONE TIME DOSE
     Route: 048
     Dates: start: 20121115
  4. EMTRICITABINE W/TENOFOVIR [Concomitant]
     Active Substance: EMTRICITABINE\TENOFOVIR DISOPROXIL
     Indication: HIV INFECTION
     Dosage: 1 DF, ONE TIME DOSE
     Route: 048
     Dates: start: 20121115
  5. INSULIN [Concomitant]
     Active Substance: INSULIN NOS

REACTIONS (3)
  - Urinary tract infection [Recovered/Resolved with Sequelae]
  - Diabetes mellitus [Unknown]
  - Pelvic inflammatory disease [Unknown]

NARRATIVE: CASE EVENT DATE: 20141031
